FAERS Safety Report 11929400 (Version 1)
Quarter: 2016Q1

REPORT INFORMATION
  Report Type: Spontaneous
  Country: US (occurrence: None)
  Receive Date: 20160119
  Receipt Date: 20160119
  Transmission Date: 20160526
  Serious: No
  Sender: FDA-Public Use
  Company Number: None

PATIENT
  Age: 49 Year
  Sex: Female
  Weight: 111.13 kg

DRUGS (27)
  1. VITAMIN D [Concomitant]
     Active Substance: CHOLECALCIFEROL
  2. MAGNESIUM AND POTASSIUM [Concomitant]
  3. BIOFLAVANOIDS FROM CRUSHED BERRIES [Concomitant]
  4. GARLIC SUPPLEMENT [Concomitant]
  5. LATUDA [Concomitant]
     Active Substance: LURASIDONE HYDROCHLORIDE
  6. WHITE TEA SUPPLEMENT [Concomitant]
  7. LATUDA [Suspect]
     Active Substance: LURASIDONE HYDROCHLORIDE
     Indication: BIPOLAR DISORDER
     Route: 048
     Dates: start: 20140101, end: 20151120
  8. WELLBUTRIN SR [Concomitant]
     Active Substance: BUPROPION HYDROCHLORIDE
  9. CRESTOR [Concomitant]
     Active Substance: ROSUVASTATIN CALCIUM
  10. TYLENOL [Concomitant]
     Active Substance: ACETAMINOPHEN
  11. GREEN TEA SUPPLEMENT [Concomitant]
  12. MULTI-VITAMIN/MULTI-MINERAL [Concomitant]
  13. MENOPAUSE BALANCE COMPLEX (RED CLOVER AND OTHER INGREDIENTS) [Concomitant]
  14. PROBIOTIC [Concomitant]
     Active Substance: PROBIOTICS NOS
  15. ATIVAN [Concomitant]
     Active Substance: LORAZEPAM
  16. MIXED CAROTENOIDS [Concomitant]
  17. GRAPESEED EXTRACT AND CITRUS PEELS [Concomitant]
  18. ATENOLOL. [Concomitant]
     Active Substance: ATENOLOL
  19. VITAMIN C [Concomitant]
     Active Substance: ASCORBIC ACID
  20. RED TEA SUPPLEMENT [Concomitant]
  21. FISH OIL [Concomitant]
     Active Substance: FISH OIL
  22. VITAMIN B COMPLEX [Concomitant]
     Active Substance: CYANOCOBALAMIN\DEXPANTHENOL\NIACINAMIDE\PYRIDOXINE HYDROCHLORIDE\RIBOFLAVIN 5^-PHOSPHATE SODIUM\THIAMINE HYDROCHLORIDE\VITAMIN B COMPLEX
  23. VITAMIN E (NATURAL KIND) [Concomitant]
  24. CELEXA [Concomitant]
     Active Substance: CITALOPRAM HYDROBROMIDE
  25. RESVERATROL [Concomitant]
     Active Substance: RESVERATROL
  26. ZINC [Concomitant]
     Active Substance: ZINC\ZINC CHLORIDE
  27. COENZYME Q10 [Concomitant]
     Active Substance: UBIDECARENONE

REACTIONS (13)
  - Confusional state [None]
  - Bruxism [None]
  - Agitation [None]
  - Malaise [None]
  - Anxiety [None]
  - Somnolence [None]
  - Apparent death [None]
  - Abnormal dreams [None]
  - Dyspnoea [None]
  - Tension [None]
  - Tooth fracture [None]
  - Restlessness [None]
  - Snoring [None]

NARRATIVE: CASE EVENT DATE: 20151120
